FAERS Safety Report 18694344 (Version 1)
Quarter: 2021Q1

REPORT INFORMATION
  Report Type: Spontaneous
  Country: US (occurrence: US)
  Receive Date: 20210102
  Receipt Date: 20210102
  Transmission Date: 20210419
  Serious: No
  Sender: FDA-Public Use
  Company Number: None

PATIENT
  Age: 72 Year
  Sex: Female
  Weight: 66.6 kg

DRUGS (4)
  1. PROLIA [Suspect]
     Active Substance: DENOSUMAB
     Indication: OSTEOPOROSIS
     Dosage: ?          QUANTITY:1 INJECTION(S);OTHER FREQUENCY:Q 6 MONTHS;OTHER ROUTE:SQ?
     Dates: start: 20190909, end: 20201031
  2. CALCIUM CARBONATE. [Concomitant]
     Active Substance: CALCIUM CARBONATE
  3. LEVOTHYROXIN [Concomitant]
     Active Substance: LEVOTHYROXINE
  4. VIT D [Concomitant]
     Active Substance: VITAMIN D NOS

REACTIONS (7)
  - Fall [None]
  - Pain in extremity [None]
  - Myalgia [None]
  - Groin pain [None]
  - Gait disturbance [None]
  - Compression fracture [None]
  - Bone pain [None]

NARRATIVE: CASE EVENT DATE: 20200504
